FAERS Safety Report 8018676-9 (Version None)
Quarter: 2012Q1

REPORT INFORMATION
  Report Type: 
  Country: None (occurrence: None)
  Receive Date: 20120103
  Receipt Date: 20120103
  Transmission Date: 20120608
  Serious: Yes (Other)
  Sender: FDA-Public Use
  Company Number: None

PATIENT
  Age: 49 Year
  Sex: Male
  Weight: 113.39 kg

DRUGS (2)
  1. ADDERALL GENERIC [Suspect]
     Indication: ATTENTION DEFICIT/HYPERACTIVITY DISORDER
     Dates: start: 20020721, end: 20111231
  2. ABILIFY [Concomitant]
     Indication: BIPOLAR DISORDER

REACTIONS (2)
  - GRIMACING [None]
  - DYSKINESIA [None]
